FAERS Safety Report 5557965-4 (Version None)
Quarter: 2007Q4

REPORT INFORMATION
  Report Type: 
  Country: None (occurrence: None)
  Receive Date: 20071214
  Receipt Date: 20071205
  Transmission Date: 20080405
  Serious: Yes (Hospitalization, Other)
  Sender: FDA-Public Use
  Company Number: PHHO2007JP18660

PATIENT
  Age: 70 Year
  Sex: Male

DRUGS (8)
  1. GLEEVEC [Suspect]
     Indication: GASTROINTESTINAL STROMAL TUMOUR
     Dosage: 400 MG, QD
     Route: 048
     Dates: start: 20040927, end: 20050127
  2. GLEEVEC [Suspect]
     Dosage: 200 MG, QD
     Route: 048
     Dates: start: 20050128, end: 20050327
  3. GLEEVEC [Suspect]
     Dosage: NO TREATMENT
     Dates: start: 20050328, end: 20060111
  4. GLEEVEC [Suspect]
     Dosage: 200 MG, QD
     Route: 048
     Dates: start: 20060112, end: 20060126
  5. GLEEVEC [Suspect]
     Dosage: 300 MG, QD
     Route: 048
     Dates: start: 20060127, end: 20060208
  6. GLEEVEC [Suspect]
     Dosage: 200 MG, QD
     Route: 048
     Dates: start: 20060209, end: 20060811
  7. GLEEVEC [Suspect]
     Dosage: NO TREATMENT
     Route: 048
     Dates: start: 20060812, end: 20060823
  8. GLEEVEC [Suspect]
     Dosage: 200 MG, QD
     Route: 048
     Dates: start: 20060824, end: 20070719

REACTIONS (4)
  - CEREBRAL INFARCTION [None]
  - DIARRHOEA [None]
  - INTERSTITIAL LUNG DISEASE [None]
  - INTESTINAL OBSTRUCTION [None]
